FAERS Safety Report 9300843 (Version 1)
Quarter: 2013Q2

REPORT INFORMATION
  Report Type: Spontaneous
  Country: GB (occurrence: GB)
  Receive Date: 20130521
  Receipt Date: 20130521
  Transmission Date: 20140414
  Serious: Yes (Hospitalization)
  Sender: FDA-Public Use
  Company Number: PHHY2013GB049023

PATIENT
  Age: 73 Year
  Sex: Male

DRUGS (7)
  1. ATENOLOL [Suspect]
     Dosage: 50 MG, UNK
  2. ATENOLOL [Suspect]
     Dosage: 100 MG, UNK
     Dates: start: 20020327
  3. ATENOLOL [Suspect]
     Dosage: 25 MG, QD
     Dates: start: 20020414
  4. ASPIRIN [Concomitant]
  5. ATORVASTATIN [Concomitant]
     Dates: start: 20020227
  6. IRBESARTAN [Concomitant]
     Dates: start: 20020227
  7. BENDROFLUAZIDE [Concomitant]

REACTIONS (2)
  - Circulatory collapse [Unknown]
  - Bradycardia [Unknown]
